FAERS Safety Report 15475194 (Version 1)
Quarter: 2018Q4

REPORT INFORMATION
  Report Type: Spontaneous
  Country: US (occurrence: US)
  Receive Date: 20181008
  Receipt Date: 20181008
  Transmission Date: 20190205
  Serious: Yes (Hospitalization)
  Sender: FDA-Public Use
  Company Number: US-IMPAX LABORATORIES, INC-2018-IPXL-03251

PATIENT
  Age: 58 Year
  Sex: Male

DRUGS (3)
  1. DOXYCYCLINE HYCLATE DELAYED RELEASE [Suspect]
     Active Substance: DOXYCYCLINE HYCLATE
     Indication: LINEAR IGA DISEASE
     Dosage: 100 MG, TWICE DAILY
     Route: 065
  2. NIACINAMIDE [Suspect]
     Active Substance: NIACINAMIDE
     Indication: LINEAR IGA DISEASE
     Dosage: 500 MG, TWICE DAILY
     Route: 065
  3. DOXYCYCLINE HYCLATE DELAYED RELEASE [Suspect]
     Active Substance: DOXYCYCLINE HYCLATE
     Indication: PRODUCT USE IN UNAPPROVED INDICATION

REACTIONS (4)
  - Proctitis ulcerative [Recovering/Resolving]
  - Flushing [Unknown]
  - Drug ineffective for unapproved indication [Unknown]
  - Linear IgA disease [Recovering/Resolving]
